FAERS Safety Report 5703682-7 (Version None)
Quarter: 2008Q2

REPORT INFORMATION
  Report Type: 
  Country: None (occurrence: None)
  Receive Date: 20080413
  Receipt Date: 20080404
  Transmission Date: 20081010
  Serious: Yes (Hospitalization)
  Sender: FDA-Public Use
  Company Number: PHRM2008FR01214

PATIENT
  Age: 73 Year
  Sex: Male

DRUGS (3)
  1. THALIDOMIDE [Concomitant]
     Dates: start: 20060701
  2. CORTICOSTEROIDS [Concomitant]
     Dates: start: 20060701
  3. ZOMETA [Suspect]
     Indication: MULTIPLE MYELOMA
     Route: 042

REACTIONS (4)
  - BONE DISORDER [None]
  - DEBRIDEMENT [None]
  - IMPAIRED HEALING [None]
  - OSTEONECROSIS [None]
